FAERS Safety Report 5104027-6 (Version None)
Quarter: 2006Q3

REPORT INFORMATION
  Report Type: 
  Country: None (occurrence: None)
  Receive Date: 20060911
  Receipt Date: 20060828
  Transmission Date: 20061208
  Serious: Yes (Hospitalization)
  Sender: FDA-Public Use
  Company Number: 2006105111

PATIENT
  Sex: Male

DRUGS (1)
  1. SUTENT [Suspect]
     Indication: RENAL CELL CARCINOMA STAGE UNSPECIFIED
     Dosage: ORAL
     Route: 048
     Dates: start: 20060601

REACTIONS (8)
  - ADRENAL NEOPLASM [None]
  - ADRENOCORTICAL INSUFFICIENCY ACUTE [None]
  - COMA [None]
  - DEHYDRATION [None]
  - HYPOCALCAEMIA [None]
  - HYPONATRAEMIA [None]
  - RENAL FAILURE [None]
  - RENAL NEOPLASM [None]
